FAERS Safety Report 21033422 (Version 1)
Quarter: 2022Q3

REPORT INFORMATION
  Report Type: Spontaneous
  Country: CN (occurrence: CN)
  Receive Date: 20220701
  Receipt Date: 20220701
  Transmission Date: 20221027
  Serious: Yes (Other)
  Sender: FDA-Public Use
  Company Number: CN-CHIESI-2022CHF03258

PATIENT

DRUGS (1)
  1. PORACTANT ALFA [Suspect]
     Active Substance: PORACTANT ALFA
     Indication: Neonatal respiratory distress syndrome
     Dosage: UNK
     Route: 038

REACTIONS (1)
  - Pneumonia [Unknown]
